FAERS Safety Report 7130813-7 (Version None)
Quarter: 2010Q4

REPORT INFORMATION
  Report Type: 
  Country: None (occurrence: None)
  Receive Date: 20101201
  Receipt Date: 20101123
  Transmission Date: 20110411
  Serious: Yes (Other)
  Sender: FDA-Public Use
  Company Number: US-ROCHE-734768

PATIENT
  Sex: Female
  Weight: 50.9 kg

DRUGS (3)
  1. BONIVA [Suspect]
     Indication: OSTEOPENIA
     Route: 048
     Dates: start: 20090401
  2. METOPROLOL [Concomitant]
  3. BALSALAZIDE DISODIUM [Concomitant]
     Dosage: DOSE:9 DAILY

REACTIONS (5)
  - ARTHRITIS [None]
  - IMPAIRED HEALING [None]
  - LOOSE TOOTH [None]
  - PERIODONTAL DISEASE [None]
  - TOOTH DISORDER [None]
